FAERS Safety Report 8603564-7 (Version None)
Quarter: 2012Q3

REPORT INFORMATION
  Report Type: 
  Country: None (occurrence: None)
  Receive Date: 20120817
  Receipt Date: 20120810
  Transmission Date: 20120928
  Serious: Yes (Other)
  Sender: FDA-Public Use
  Company Number: PHHY2012AU070706

PATIENT
  Age: 19 Month
  Sex: Male

DRUGS (2)
  1. PROPRANOLOL [Suspect]
     Dosage: 1 MG/KG, PER DAY
  2. PROPRANOLOL [Suspect]
     Indication: HAEMANGIOMA
     Dosage: 2 MG/KG, PER DAY

REACTIONS (2)
  - VIRAL UPPER RESPIRATORY TRACT INFECTION [None]
  - WHEEZING [None]
